FAERS Safety Report 13615917 (Version 1)
Quarter: 2017Q2

REPORT INFORMATION
  Report Type: Spontaneous
  Country: FR (occurrence: FR)
  Receive Date: 20170606
  Receipt Date: 20170606
  Transmission Date: 20170830
  Serious: Yes (Life-Threatening, Hospitalization, Other)
  Sender: FDA-Public Use
  Company Number: FR-BAYER-2012-028324

PATIENT
  Age: 28 Year
  Sex: Female
  Weight: 62 kg

DRUGS (1)
  1. MIRENA [Suspect]
     Active Substance: LEVONORGESTREL
     Indication: CONTRACEPTION
     Dosage: 20 MCG/24HR, CONT
     Route: 015
     Dates: start: 20100609, end: 20120327

REACTIONS (6)
  - Ectopic pregnancy with contraceptive device [Recovered/Resolved with Sequelae]
  - Amenorrhoea [None]
  - Salpingo-oophorectomy [Recovered/Resolved with Sequelae]
  - Abdominal pain [Recovered/Resolved with Sequelae]
  - Drug ineffective [Recovered/Resolved with Sequelae]
  - Pelvic pain [Recovered/Resolved with Sequelae]

NARRATIVE: CASE EVENT DATE: 20100609
